FAERS Safety Report 10296583 (Version 1)
Quarter: 2014Q3

REPORT INFORMATION
  Report Type: Spontaneous
  Country: FR (occurrence: FR)
  Receive Date: 20140710
  Receipt Date: 20140710
  Transmission Date: 20150326
  Serious: Yes (Death, Hospitalization, Other)
  Sender: FDA-Public Use
  Company Number: FR-ABBVIE-14P-056-1257945-00

PATIENT
  Age: 81 Year
  Sex: Female

DRUGS (7)
  1. INVIRASE [Suspect]
     Active Substance: SAQUINAVIR MESYLATE
     Indication: HIV INFECTION
     Dosage: 3  TABLETS A DAY
     Route: 048
     Dates: start: 20060821, end: 20140203
  2. EVIPLERA [Suspect]
     Active Substance: EMTRICITABINE\RILPIVIRINE\TENOFOVIR DISOPROXIL FUMARATE
     Indication: HIV INFECTION
     Route: 048
     Dates: start: 20140203, end: 20140220
  3. ISENTRESS [Suspect]
     Active Substance: RALTEGRAVIR POTASSIUM
     Indication: HIV INFECTION
     Route: 048
     Dates: start: 20080703, end: 20140203
  4. CORTANCYL [Suspect]
     Active Substance: PREDNISONE
     Indication: PRODUCT USED FOR UNKNOWN INDICATION
     Route: 048
  5. COLTRAMYL [Concomitant]
     Active Substance: THIOCOLCHICOSIDE
     Indication: PRODUCT USED FOR UNKNOWN INDICATION
  6. NORVIR [Suspect]
     Active Substance: RITONAVIR
     Indication: HIV INFECTION
     Route: 048
  7. GLYCEROL\PARAFFIN [Concomitant]
     Active Substance: GLYCERIN\PARAFFIN
     Indication: PRODUCT USED FOR UNKNOWN INDICATION
     Route: 061

REACTIONS (8)
  - Cardiac cirrhosis [Unknown]
  - Cardiogenic shock [Fatal]
  - Cardiac arrest [Fatal]
  - Myocarditis [Fatal]
  - Inflammatory marker increased [Fatal]
  - Myocardial infarction [Fatal]
  - Diarrhoea [Unknown]
  - Lactic acidosis [Fatal]

NARRATIVE: CASE EVENT DATE: 20140210
